FAERS Safety Report 10474327 (Version 3)
Quarter: 2014Q4

REPORT INFORMATION
  Report Type: Spontaneous
  Country: US (occurrence: US)
  Receive Date: 20140924
  Receipt Date: 20141001
  Transmission Date: 20150528
  Serious: No
  Sender: FDA-Public Use
  Company Number: US-PFIZER INC-2014261424

PATIENT
  Age: 55 Year
  Sex: Male
  Weight: 89.8 kg

DRUGS (9)
  1. TOVIAZ [Suspect]
     Active Substance: FESOTERODINE FUMARATE
     Dosage: 8 MG, DAILY
     Route: 048
  2. LEVOXYL [Concomitant]
     Active Substance: LEVOTHYROXINE SODIUM
     Dosage: UNK,
  3. IBUPROFEN. [Concomitant]
     Active Substance: IBUPROFEN
  4. IMIPRAMINE [Concomitant]
     Active Substance: IMIPRAMINE
     Dosage: UNK,
  5. TOVIAZ [Suspect]
     Active Substance: FESOTERODINE FUMARATE
     Dosage: 4 MG,DAILY
     Route: 048
     Dates: start: 201409
  6. TOVIAZ [Suspect]
     Active Substance: FESOTERODINE FUMARATE
     Dosage: 4 MG, DAILY
     Route: 048
     Dates: start: 20140918
  7. LISINOPRIL. [Concomitant]
     Active Substance: LISINOPRIL
     Dosage: 20 MG, DAILY
  8. METOPROLOL XR [Concomitant]
     Active Substance: METOPROLOL SUCCINATE
     Dosage: 100 MG, DAILY
  9. DULOXETINE [Concomitant]
     Active Substance: DULOXETINE
     Dosage: UNK,

REACTIONS (3)
  - Urine output increased [Unknown]
  - Pollakiuria [Not Recovered/Not Resolved]
  - Drug ineffective [Unknown]

NARRATIVE: CASE EVENT DATE: 201409
